FAERS Safety Report 6184416-1 (Version None)
Quarter: 2009Q2

REPORT INFORMATION
  Report Type: 
  Country: None (occurrence: None)
  Receive Date: 20090508
  Receipt Date: 20090428
  Transmission Date: 20091009
  Serious: Yes (Hospitalization)
  Sender: FDA-Public Use
  Company Number: B0573100A

PATIENT
  Age: 69 Year
  Sex: Female

DRUGS (3)
  1. MALARONE [Suspect]
     Indication: MALARIA PROPHYLAXIS
     Route: 048
  2. ALENDRONIC ACID [Concomitant]
     Indication: OSTEOPOROSIS
     Route: 048
  3. ADCAL D3 [Concomitant]
     Indication: OSTEOPOROSIS
     Route: 048

REACTIONS (5)
  - DYSPNOEA [None]
  - EOSINOPHILIA [None]
  - LUNG CONSOLIDATION [None]
  - PLEURAL EFFUSION [None]
  - RASH [None]
